FAERS Safety Report 5074835-9 (Version None)
Quarter: 2006Q3

REPORT INFORMATION
  Report Type: 
  Country: None (occurrence: None)
  Receive Date: 20060809
  Receipt Date: 20060411
  Transmission Date: 20061208
  Serious: Yes (Other)
  Sender: FDA-Public Use
  Company Number: PHEH2006US04751

PATIENT
  Sex: Female

DRUGS (8)
  1. SYNTHROID [Concomitant]
     Indication: HYPOTHYROIDISM
  2. LEXAPRO [Concomitant]
  3. KLONOPIN [Concomitant]
     Indication: ANXIETY
     Dosage: 0.5MG BID, PRN
  4. LUNESTA [Concomitant]
     Indication: INSOMNIA
  5. TEGRETOL [Suspect]
     Indication: BIPOLAR DISORDER
     Dosage: 200 MG, BID
     Route: 048
     Dates: start: 20051117
  6. TEGRETOL [Suspect]
     Dosage: 400 MG, QHS
     Route: 048
     Dates: start: 20050901, end: 20060415
  7. AMBIEN [Concomitant]
     Dosage: 10 MG, QHS
  8. CELEXA [Concomitant]
     Indication: ANXIETY
     Dosage: 20 MG, QD

REACTIONS (12)
  - ANGER [None]
  - BIPOLAR DISORDER [None]
  - CONDITION AGGRAVATED [None]
  - DIZZINESS [None]
  - FRUSTRATION [None]
  - INTENTIONAL OVERDOSE [None]
  - MEAN CELL HAEMOGLOBIN DECREASED [None]
  - MEAN CELL VOLUME ABNORMAL [None]
  - OBSESSIVE-COMPULSIVE DISORDER [None]
  - RED BLOOD CELL COUNT INCREASED [None]
  - SUICIDAL IDEATION [None]
  - SUICIDE ATTEMPT [None]
